FAERS Safety Report 6717346-4 (Version None)
Quarter: 2010Q2

REPORT INFORMATION
  Report Type: 
  Country: None (occurrence: None)
  Receive Date: 20100505
  Receipt Date: 20100428
  Transmission Date: 20101027
  Serious: Yes (Other)
  Sender: FDA-Public Use
  Company Number: 2010SP024567

PATIENT
  Age: 38 Year
  Sex: Female
  Weight: 76 kg

DRUGS (3)
  1. IMPLANON [Suspect]
     Indication: CONTRACEPTION
     Dosage: 68 MG;SBDE, 68 MG;SBDE
     Route: 059
     Dates: start: 20041028, end: 20071001
  2. IMPLANON [Suspect]
     Indication: CONTRACEPTION
     Dosage: 68 MG;SBDE, 68 MG;SBDE
     Route: 059
     Dates: start: 20071001
  3. LEVOTHYROXINE SODIUM [Concomitant]

REACTIONS (5)
  - ANAEMIA [None]
  - DYSFUNCTIONAL UTERINE BLEEDING [None]
  - HYPOTHYROIDISM [None]
  - OVARIAN CYST [None]
  - PANIC ATTACK [None]
